APPROVED DRUG PRODUCT: PRIMIDONE
Active Ingredient: PRIMIDONE
Strength: 50MG
Dosage Form/Route: TABLET;ORAL
Application: A040626 | Product #001 | TE Code: AB
Applicant: TP ANDA HOLDINGS LLC
Approved: Sep 29, 2005 | RLD: No | RS: No | Type: RX